FAERS Safety Report 6583898-0 (Version None)
Quarter: 2010Q1

REPORT INFORMATION
  Report Type: 
  Country: None (occurrence: None)
  Receive Date: 20100216
  Receipt Date: 20091119
  Transmission Date: 20100710
  Serious: No
  Sender: FDA-Public Use
  Company Number: US-ABBOTT-09P-163-0610837-00

PATIENT
  Sex: Female
  Weight: 72.64 kg

DRUGS (3)
  1. SIMCOR [Suspect]
     Indication: BLOOD CHOLESTEROL INCREASED
     Dosage: 500/20MG DAILY AT HOUR OF SLEEP
     Route: 048
     Dates: start: 20091115, end: 20091119
  2. JANUVIA [Concomitant]
     Indication: DIABETES MELLITUS
     Dosage: DAILY AT DIFFERENT TIME THAN GLUMETZA
     Route: 048
  3. GLUMETZA [Concomitant]
     Indication: DIABETES MELLITUS
     Dosage: DAILY AT DIFFERENT TIME THAN JANUVIA
     Route: 048

REACTIONS (1)
  - BACK PAIN [None]
